FAERS Safety Report 13436702 (Version 2)
Quarter: 2017Q2

REPORT INFORMATION
  Report Type: Report from Study
  Country: CA (occurrence: CA)
  Receive Date: 20170413
  Receipt Date: 20170420
  Transmission Date: 20170830
  Serious: Yes (Hospitalization)
  Sender: FDA-Public Use
  Company Number: CA-ACTELION-A-NJ2017-152330

PATIENT
  Age: 48 Year
  Sex: Male
  Weight: 90 kg

DRUGS (9)
  1. FUROSEMIDE. [Concomitant]
     Active Substance: FUROSEMIDE
  2. WARFARIN [Concomitant]
     Active Substance: WARFARIN
  3. CARIPUL [Suspect]
     Active Substance: EPOPROSTENOL
     Indication: PULMONARY ARTERIAL HYPERTENSION
     Dosage: UNK
     Route: 042
     Dates: start: 20170210
  4. REMODULIN [Concomitant]
     Active Substance: TREPROSTINIL
  5. ZAROXOLYN [Concomitant]
     Active Substance: METOLAZONE
  6. SPIRONOLACTONE. [Concomitant]
     Active Substance: SPIRONOLACTONE
  7. MULTIVITAMIN [Concomitant]
     Active Substance: VITAMINS
  8. BOSENTAN. [Concomitant]
     Active Substance: BOSENTAN
  9. POTASSIUM [Concomitant]
     Active Substance: POTASSIUM

REACTIONS (1)
  - Lung transplant [Not Recovered/Not Resolved]

NARRATIVE: CASE EVENT DATE: 2017
